FAERS Safety Report 5049775-1 (Version None)
Quarter: 2006Q3

REPORT INFORMATION
  Report Type: 
  Country: None (occurrence: None)
  Receive Date: 20060707
  Receipt Date: 20060622
  Transmission Date: 20061208
  Serious: Yes (Hospitalization)
  Sender: FDA-Public Use
  Company Number: ABCOL-06-0313

PATIENT
  Age: 45 Year
  Sex: Female
  Weight: 72.5755 kg

DRUGS (4)
  1. ABRAXANE [Suspect]
     Indication: BREAST CANCER METASTATIC
     Dosage: SEE IMAGE
     Route: 041
     Dates: start: 20060126, end: 20060321
  2. ABRAXANE [Suspect]
     Indication: BREAST CANCER METASTATIC
     Dosage: SEE IMAGE
     Route: 041
     Dates: end: 20060321
  3. CARBOPLATIN [Suspect]
     Indication: BREAST CANCER METASTATIC
     Dosage: 500 MG (EVERY 3 WEEKS), INTRAVENOUS
     Route: 042
     Dates: start: 20060126, end: 20060321
  4. NEULASTA [Suspect]
     Dates: start: 20060127

REACTIONS (8)
  - CATHETER RELATED INFECTION [None]
  - DEHYDRATION [None]
  - MUCOSAL INFLAMMATION [None]
  - NEUTROPENIA [None]
  - ORAL MUCOSAL BLISTERING [None]
  - RASH [None]
  - SEPSIS [None]
  - THROMBOCYTOPENIA [None]
